FAERS Safety Report 7156855-3 (Version None)
Quarter: 2010Q4

REPORT INFORMATION
  Report Type: 
  Country: None (occurrence: None)
  Receive Date: 20101214
  Receipt Date: 20101203
  Transmission Date: 20110411
  Serious: Yes (Hospitalization)
  Sender: FDA-Public Use
  Company Number: FR-JNJFOC-20101202505

PATIENT
  Sex: Male

DRUGS (13)
  1. PREZISTA [Suspect]
     Indication: HIV INFECTION
     Route: 048
     Dates: start: 20100819
  2. TOPALGIC [Suspect]
     Indication: BACK PAIN
     Route: 042
     Dates: start: 20101022, end: 20101022
  3. PERFALGAN [Suspect]
     Indication: BACK PAIN
     Route: 042
     Dates: start: 20101022, end: 20101022
  4. ACETAMINOPHEN [Suspect]
     Indication: BACK PAIN
     Route: 048
     Dates: start: 20101023, end: 20101027
  5. PROFENID [Suspect]
     Indication: BACK PAIN
     Route: 042
     Dates: start: 20101022, end: 20101022
  6. NORVIR [Suspect]
     Indication: HIV INFECTION
     Route: 048
     Dates: start: 20100819
  7. TRUVADA [Suspect]
     Indication: HIV INFECTION
     Route: 048
     Dates: start: 20100819
  8. BACTRIM DS [Concomitant]
     Indication: PNEUMOCYSTIS JIROVECI PNEUMONIA
     Route: 048
     Dates: start: 20100731
  9. SKENAN [Concomitant]
     Indication: BACK PAIN
     Route: 048
     Dates: start: 20101022
  10. XATRAL [Concomitant]
     Indication: DYSURIA
     Dates: start: 20100819
  11. IMOVANE [Concomitant]
     Indication: PRODUCT USED FOR UNKNOWN INDICATION
     Dates: start: 20100801
  12. SPIRIVA [Concomitant]
     Indication: PRODUCT USED FOR UNKNOWN INDICATION
  13. INNOVAR [Concomitant]
     Indication: PRODUCT USED FOR UNKNOWN INDICATION

REACTIONS (1)
  - CYTOLYTIC HEPATITIS [None]
